FAERS Safety Report 5271820-9 (Version None)
Quarter: 2007Q1

REPORT INFORMATION
  Report Type: 
  Country: None (occurrence: None)
  Receive Date: 20070321
  Receipt Date: 20070312
  Transmission Date: 20070707
  Serious: Yes (Death)
  Sender: FDA-Public Use
  Company Number: FR-PFIZER INC-2007019233

PATIENT
  Age: 55 Year
  Sex: Female
  Weight: 79 kg

DRUGS (5)
  1. IRINOTECAN HCL [Suspect]
     Route: 042
  2. FLUOROURACIL [Suspect]
     Route: 042
  3. COUMADIN [Suspect]
     Route: 048
  4. ZOPHREN [Suspect]
     Route: 042
  5. AVASTIN [Suspect]
     Route: 042

REACTIONS (1)
  - DEATH [None]
